FAERS Safety Report 21493593 (Version 1)
Quarter: 2022Q4

REPORT INFORMATION
  Report Type: Spontaneous
  Country: TR (occurrence: TR)
  Receive Date: 20221021
  Receipt Date: 20221021
  Transmission Date: 20230112
  Serious: Yes (Death, Other)
  Sender: FDA-Public Use
  Company Number: TR-009507513-2210TUR007565

PATIENT
  Age: 83 Year
  Sex: Male

DRUGS (6)
  1. VERICIGUAT HYDROCHLORIDE [Suspect]
     Active Substance: VERICIGUAT HYDROCHLORIDE
  2. NYSTATIN [Concomitant]
     Active Substance: NYSTATIN
  3. APIXABAN [Concomitant]
     Active Substance: APIXABAN
  4. BISOPROLOL [Concomitant]
     Active Substance: BISOPROLOL
  5. TORSEMIDE [Concomitant]
     Active Substance: TORSEMIDE
  6. SACUBITRIL [Concomitant]
     Active Substance: SACUBITRIL

REACTIONS (7)
  - Cardiorenal syndrome [Fatal]
  - Cardiac failure [Unknown]
  - Nausea [Recovered/Resolved]
  - Vomiting [Recovered/Resolved]
  - Diarrhoea [Recovered/Resolved]
  - Hypotension [Recovered/Resolved]
  - Dysphemia [Recovered/Resolved]

NARRATIVE: CASE EVENT DATE: 20220113
